FAERS Safety Report 8831719 (Version 3)
Quarter: 2012Q4

REPORT INFORMATION
  Report Type: Report from Study
  Country: CA (occurrence: CA)
  Receive Date: 20121009
  Receipt Date: 20121028
  Transmission Date: 20130627
  Serious: Yes (Hospitalization)
  Sender: FDA-Public Use
  Company Number: CA-CELGENEUS-028-AB007-12080477

PATIENT
  Age: 58 Year
  Sex: Female
  Weight: 87.5 kg

DRUGS (28)
  1. ABI-007 [Suspect]
     Indication: PANCREATIC CANCER METASTATIC
     Dosage: 125 milligram/sq. meter
     Route: 041
     Dates: start: 20101124
  2. ABI-007 [Suspect]
     Dosage: 100 milligram/sq. meter
     Route: 041
     Dates: start: 20120717, end: 20120731
  3. GEMCITABINE [Suspect]
     Indication: PANCREATIC CANCER METASTATIC
     Dosage: 1000 milligram/sq. meter
     Route: 041
     Dates: start: 20101124
  4. GEMCITABINE [Suspect]
     Dosage: 600 milligram/sq. meter
     Route: 041
     Dates: start: 20120717, end: 20120731
  5. BISOPROLOL [Concomitant]
     Indication: HYPERTENSION
     Dosage: 5 Milligram
     Route: 048
     Dates: start: 20120712
  6. BISOPROLOL [Concomitant]
     Indication: CONGESTIVE HEART FAILURE
     Dosage: 5 Milligram
     Route: 048
     Dates: start: 20120731
  7. CLARITHROMYCIN [Concomitant]
     Indication: ATELECTASIS
     Dosage: 500 Milligram
     Route: 048
     Dates: start: 201207
  8. CLARITHROMYCIN [Concomitant]
     Indication: DYSPNEA
     Dosage: 500 Milligram
     Route: 048
     Dates: start: 20120724, end: 20120801
  9. FUROSEMIDE [Concomitant]
     Indication: DRUG USE FOR UNKNOWN INDICATION
     Dosage: 40 Milligram
     Route: 041
  10. FUROSEMIDE [Concomitant]
     Dosage: 20 Milligram
     Route: 041
  11. FUROSEMIDE [Concomitant]
     Route: 048
  12. DOMPERIDONE [Concomitant]
     Indication: NAUSEA
     Dosage: 10 Milligram
     Route: 048
     Dates: start: 201010
  13. ATIVAN [Concomitant]
     Indication: INSOMNIA
     Dosage: 1 Milligram
     Route: 060
     Dates: start: 201010
  14. VITAMIN D [Concomitant]
     Indication: SUPPLEMENTATION THERAPY
     Dosage: 400 IU (International Unit)
     Route: 048
     Dates: start: 2009
  15. OXYCOCET [Concomitant]
     Indication: PAIN
     Dosage: 1-2 Tabs
     Route: 048
     Dates: start: 201010
  16. OXYCOCET [Concomitant]
     Indication: MIGRAINE HEADACHE
  17. GRANISETRON [Concomitant]
     Indication: NAUSEA PROPHYLAXIS
     Dosage: 2 Milligram
     Route: 048
     Dates: start: 20110111
  18. SENOKOT [Concomitant]
     Indication: CONSTIPATION
     Route: 048
     Dates: start: 201010
  19. COLACE [Concomitant]
     Indication: CONSTIPATION
     Dosage: 100 Milligram
     Route: 048
     Dates: start: 201010
  20. LACTULOSE [Concomitant]
     Indication: CONSTIPATION
     Dosage: 30cc
     Route: 048
     Dates: start: 20120309
  21. AMLODIPINE [Concomitant]
     Indication: HYPERTENSION
     Dosage: 2.5 Milligram
     Route: 048
     Dates: start: 20120802
  22. ZANTAC [Concomitant]
     Indication: DRUG USE FOR UNKNOWN INDICATION
     Route: 065
  23. BLOOD [Concomitant]
     Indication: ANEMIA
     Dosage: 2 IU (International Unit)
     Route: 041
  24. DIMENHYDRINATE [Concomitant]
     Indication: DRUG USE FOR UNKNOWN INDICATION
     Route: 065
  25. FLUIDS [Concomitant]
     Indication: CREATININE
     Route: 041
  26. OXYCODONE ACETAMINOPHEN [Concomitant]
     Indication: DRUG USE FOR UNKNOWN INDICATION
     Dosage: 5mg/325mg
     Route: 048
  27. ZOPICLONE [Concomitant]
     Indication: DRUG USE FOR UNKNOWN INDICATION
     Route: 048
  28. LEVOFLOXACIN [Concomitant]
     Indication: UPPER RESPIRATORY INFECTION
     Route: 048
     Dates: start: 201111, end: 20111113

REACTIONS (2)
  - Renal failure [Recovered/Resolved]
  - Cardiac failure congestive [Recovered/Resolved with Sequelae]
